FAERS Safety Report 16600701 (Version 1)
Quarter: 2019Q3

REPORT INFORMATION
  Report Type: Spontaneous
  Country: US (occurrence: US)
  Receive Date: 20190719
  Receipt Date: 20190719
  Transmission Date: 20191004
  Serious: No
  Sender: FDA-Public Use
  Company Number: US-PFIZER INC-2016354812

PATIENT
  Age: 65 Year
  Sex: Male
  Weight: 89.8 kg

DRUGS (27)
  1. PAROXETINE HCL [Concomitant]
     Active Substance: PAROXETINE HYDROCHLORIDE
     Dosage: 20 MG, UNK
  2. ASPIRIN 81 [Concomitant]
     Active Substance: ASPIRIN
     Dosage: 81 MG, UNK
  3. DESYREL [Concomitant]
     Active Substance: TRAZODONE HYDROCHLORIDE
     Indication: INSOMNIA
     Dosage: 50 MG, AS NEEDED
     Route: 048
  4. LYRICA [Suspect]
     Active Substance: PREGABALIN
     Dosage: 75 MG, 4X/DAY
     Route: 048
  5. LOTRIMIN [Concomitant]
     Active Substance: CLOTRIMAZOLE
     Indication: TINEA CRURIS
     Dosage: UNK UNK, 2X/DAY (APPLY [1% CREAM] TWICE A DAY)
     Route: 061
  6. LEVEMIR [Concomitant]
     Active Substance: INSULIN DETEMIR
     Dosage: 72 IU, 2X/DAY (INJECT 72 UNITS SUBCUTANEOUSLY BID)
     Route: 058
  7. SPIRONOLACTONE. [Concomitant]
     Active Substance: SPIRONOLACTONE
     Dosage: 25 MG, UNK
  8. COREG [Concomitant]
     Active Substance: CARVEDILOL
     Dosage: 12.5 MG, 2X/DAY [TAKE 1 TABLET (12.5 MG TOTAL) 2 (TWO) TIMES DAILY WITH MEALS]
     Route: 048
  9. FISH OIL OMEGA 3 [Concomitant]
     Active Substance: FISH OIL
     Dosage: UNK (300-1000 MG)
  10. INSULIN LISPRO [Concomitant]
     Active Substance: INSULIN LISPRO
     Indication: DIABETIC NEUROPATHY
     Dosage: 10 IU, 3X/DAY (INJECT 10 UNITS SUBCUTANEOUSLY THREE TIMES DAILY WITH MEALS)
  11. LYRICA [Suspect]
     Active Substance: PREGABALIN
     Dosage: 150 MG (2 CAPSULES), 2X/DAY
     Route: 048
     Dates: start: 20170130
  12. CARVEDILOL. [Concomitant]
     Active Substance: CARVEDILOL
     Dosage: 12.5 MG, UNK
  13. INSPRA [Concomitant]
     Active Substance: EPLERENONE
     Indication: LEFT VENTRICULAR FAILURE
     Dosage: 25 MG, DAILY (TAKE 1 TABLET (25 MG TOTAL) BY MOUTH DAILY)
     Route: 048
  14. LYRICA [Suspect]
     Active Substance: PREGABALIN
     Dosage: 75 MG, 2X/DAY
     Route: 048
     Dates: start: 20170614
  15. LYRICA [Suspect]
     Active Substance: PREGABALIN
     Dosage: 75 MG, UNK
     Route: 048
  16. TRAZODONE HYDROCHLORIDE. [Concomitant]
     Active Substance: TRAZODONE HYDROCHLORIDE
     Dosage: 50 MG, UNK
  17. NORVASC [Concomitant]
     Active Substance: AMLODIPINE BESYLATE
     Dosage: 7.5 MG, (5 MG IN AM AND 2.5 MG [HALF TABLET] IN PM)
  18. LYRICA [Suspect]
     Active Substance: PREGABALIN
     Dosage: 150 MG (SIG: 1 CAPSULE), 2X/DAY
     Route: 048
     Dates: start: 20190701
  19. HUMALOG [Concomitant]
     Active Substance: INSULIN LISPRO
     Indication: DIABETIC NEUROPATHY
     Dosage: 10 IU, 3X/DAY (WITH MEALS)
     Route: 058
  20. PAXIL [Concomitant]
     Active Substance: PAROXETINE HYDROCHLORIDE
     Dosage: 20 MG, 1X/DAY (TAKE 1 TABLET (20 MG TOTAL) BY MOUTH EVERY MORNING)
     Route: 048
  21. LYRICA [Suspect]
     Active Substance: PREGABALIN
     Indication: DIABETIC NEUROPATHY
     Dosage: 150 MG (2 CAPSULES), 2X/DAY
     Route: 048
     Dates: start: 20160617
  22. PANTOPRAZOLE SODIUM. [Concomitant]
     Active Substance: PANTOPRAZOLE SODIUM
     Dosage: 40 MG, UNK
  23. ENTRESTO [Concomitant]
     Active Substance: SACUBITRIL\VALSARTAN
     Indication: LEFT VENTRICULAR FAILURE
     Dosage: 1 DF, 2X/DAY (TAKE 1 TABLET TWICE A DAY) [SACUBITRIL: 24MG]/ [VALSARTAN: 26MG]
     Route: 048
  24. THERAGRAN [Concomitant]
     Active Substance: VITAMINS
     Dosage: UNK
  25. LYRICA [Suspect]
     Active Substance: PREGABALIN
     Indication: POLYNEUROPATHY IDIOPATHIC PROGRESSIVE
     Dosage: 150 MG (TAKE 2 CAPSULES), 2X/DAY
     Route: 048
     Dates: start: 20160715
  26. LEVEMIR [Concomitant]
     Active Substance: INSULIN DETEMIR
     Indication: DIABETIC NEUROPATHY
     Dosage: 100 UNIT/ML-SOLN
  27. PROTONIX [Concomitant]
     Active Substance: PANTOPRAZOLE SODIUM
     Dosage: 40 MG, DAILY (TAKE 1 TABLET (40 MG TOTAL) BY MOUTH EVERY MORNING BEFORE BREAKFAST)
     Route: 048

REACTIONS (1)
  - Confusional state [Unknown]
